FAERS Safety Report 18643217 (Version 1)
Quarter: 2020Q4

REPORT INFORMATION
  Report Type: Spontaneous
  Country: US (occurrence: US)
  Receive Date: 20201221
  Receipt Date: 20201221
  Transmission Date: 20210114
  Serious: Yes (Death)
  Sender: FDA-Public Use
  Company Number: NVSC2020US337386

PATIENT
  Age: 37 Year
  Sex: Male

DRUGS (1)
  1. MEKINIST [Suspect]
     Active Substance: TRAMETINIB DIMETHYL SULFOXIDE
     Indication: BRAIN CANCER METASTATIC
     Dosage: 2 MG, QD
     Route: 048
     Dates: start: 20200929

REACTIONS (2)
  - Product use in unapproved indication [Unknown]
  - Death [Fatal]

NARRATIVE: CASE EVENT DATE: 20201203
